FAERS Safety Report 10238375 (Version 1)
Quarter: 2014Q2

REPORT INFORMATION
  Report Type: Spontaneous
  Country: US (occurrence: None)
  Receive Date: 20140613
  Receipt Date: 20140613
  Transmission Date: 20141212
  Serious: Yes (Other)
  Sender: FDA-Public Use
  Company Number: None

PATIENT
  Age: 81 Year
  Sex: Female
  Weight: 99 kg

DRUGS (4)
  1. NOVOLOG [Suspect]
     Indication: DIABETES MELLITUS
     Dosage: 12, QID, SUBCUTANEOUS
     Route: 058
  2. NOVOLOG [Suspect]
     Indication: HYPERGLYCAEMIA
     Dosage: 12, QID, SUBCUTANEOUS
     Route: 058
  3. NOVOLOG 12 UNITS QID + SLIDING SCALE [Concomitant]
  4. NOVOLOG 70/30 45 UNITS BID. CONFUSION BETWEEN PRODUCTS CAUSED PRODUCTS TO BE INTERCHANGED AND WRONG DRUG/DOSE ADMINISTERED. THESE PRODUCTS NEED TO HAVE THEIR NAMES CHANGED TO MINIMIZE THE RISK OF THIS ERROR OCCURING. THIS HAS BEEN KNOWN FOR YEARS, YET TH [Concomitant]

REACTIONS (1)
  - Medication error [None]
